FAERS Safety Report 16422836 (Version 1)
Quarter: 2019Q2

REPORT INFORMATION
  Report Type: Spontaneous
  Country: US (occurrence: US)
  Receive Date: 20190612
  Receipt Date: 20190612
  Transmission Date: 20190711
  Serious: No
  Sender: FDA-Public Use
  Company Number: US-SA-2019SA158979

PATIENT
  Sex: Male

DRUGS (2)
  1. DUPIXENT [Suspect]
     Active Substance: DUPILUMAB
     Indication: DERMATITIS ATOPIC
     Dosage: 300 MG, QOW
     Route: 058
  2. AMLODIPINE [Concomitant]
     Active Substance: AMLODIPINE BESYLATE

REACTIONS (6)
  - Injection site discolouration [Recovering/Resolving]
  - Injection site mass [Recovering/Resolving]
  - Rash pruritic [Recovering/Resolving]
  - Herpes zoster [Recovering/Resolving]
  - Injection site swelling [Recovering/Resolving]
  - Rash generalised [Recovering/Resolving]
